FAERS Safety Report 10230286 (Version 2)
Quarter: 2014Q2

REPORT INFORMATION
  Report Type: Report from Study
  Country: MX (occurrence: MX)
  Receive Date: 20140611
  Receipt Date: 20140612
  Transmission Date: 20141212
  Serious: Yes (Death, Hospitalization, Other)
  Sender: FDA-Public Use
  Company Number: PHHY2014MX071972

PATIENT
  Age: 81 Year
  Sex: Male

DRUGS (1)
  1. CO-DIOVAN [Suspect]
     Indication: HYPERTENSION
     Dosage: 1 TABLET (160/12.5 MG), DAILY
     Route: 048

REACTIONS (4)
  - Respiratory arrest [Fatal]
  - Memory impairment [Unknown]
  - Condition aggravated [Unknown]
  - Syncope [Unknown]
